FAERS Safety Report 18951790 (Version 1)
Quarter: 2021Q1

REPORT INFORMATION
  Report Type: Spontaneous
  Country: ES (occurrence: ES)
  Receive Date: 20210301
  Receipt Date: 20210301
  Transmission Date: 20210420
  Serious: Yes (Death, Hospitalization, Other)
  Sender: FDA-Public Use
  Company Number: ES-AUROBINDO-AUR-APL-2021-008351

PATIENT
  Age: 26 Year
  Sex: Male
  Weight: 90 kg

DRUGS (14)
  1. PARACETAMOL [Suspect]
     Active Substance: ACETAMINOPHEN
     Dosage: ADMINISTRATION IN HOSPITAL EMERGENCIES
     Route: 065
     Dates: start: 20210201, end: 20210201
  2. SALBUTAMOL [Concomitant]
     Active Substance: ALBUTEROL
     Indication: PRODUCT USED FOR UNKNOWN INDICATION
     Dosage: ADMINISTRATION IN HOSPITAL EMERGENCIES
     Route: 065
     Dates: start: 20210130
  3. URBASON [Suspect]
     Active Substance: METHYLPREDNISOLONE
     Indication: PRODUCT USED FOR UNKNOWN INDICATION
     Dosage: ADMINISTRATION IN HOSPITAL EMERGENCIES
     Route: 065
     Dates: start: 20210130, end: 20210130
  4. PARACETAMOL [Suspect]
     Active Substance: ACETAMINOPHEN
     Indication: PRODUCT USED FOR UNKNOWN INDICATION
     Dosage: ADMINISTRATION IN HOSPITAL EMERGENCIES
     Route: 065
     Dates: start: 20210130, end: 20210130
  5. ENANTYUM [Suspect]
     Active Substance: DEXKETOPROFEN TROMETAMOL
     Indication: PRODUCT USED FOR UNKNOWN INDICATION
     Dosage: ADMINISTRATION IN HOSPITAL EMERGENCIES
     Route: 065
     Dates: start: 20210201, end: 20210201
  6. PREDNISONE. [Suspect]
     Active Substance: PREDNISONE
     Indication: PRODUCT USED FOR UNKNOWN INDICATION
     Dosage: 30 MILLIGRAM, ONCE A DAY, 1?0?0
     Route: 048
     Dates: start: 20210130
  7. ATROVENT [Concomitant]
     Active Substance: IPRATROPIUM BROMIDE
     Indication: PRODUCT USED FOR UNKNOWN INDICATION
     Dosage: ADMINISTRATION IN HOSPITAL EMERGENCIES
     Route: 065
     Dates: start: 20210130
  8. PARACETAMOL 1000 MG TABLETS [Suspect]
     Active Substance: ACETAMINOPHEN
     Indication: PRODUCT USED FOR UNKNOWN INDICATION
     Dosage: 1 GRAM, 1?1?1 SI NEEDS
     Route: 048
     Dates: start: 20210130
  9. NOLOTIL [METAMIZOLE MAGNESIUM] [Suspect]
     Active Substance: METAMIZOLE MAGNESIUM
     Indication: PRODUCT USED FOR UNKNOWN INDICATION
     Dosage: ADMINISTRATION IN HOSPITAL EMERGENCIES
     Route: 065
     Dates: start: 20210201
  10. VENTOLIN [Concomitant]
     Active Substance: ALBUTEROL SULFATE
     Indication: PRODUCT USED FOR UNKNOWN INDICATION
     Dosage: REQUEST
     Route: 055
     Dates: start: 20210130
  11. NOLOTIL [METAMIZOLE MAGNESIUM] [Suspect]
     Active Substance: METAMIZOLE MAGNESIUM
     Indication: PRODUCT USED FOR UNKNOWN INDICATION
     Dosage: 1 DOSAGE FORM, 3 TIMES A DAY,INTERCALATED WITH PARACETAMOL
     Route: 048
     Dates: start: 20210201
  12. SYMBICORT [Concomitant]
     Active Substance: BUDESONIDE\FORMOTEROL FUMARATE DIHYDRATE
     Indication: PRODUCT USED FOR UNKNOWN INDICATION
     Dosage: 1 INHALER OF 120 DOSES
     Route: 055
     Dates: start: 20201103
  13. AUGMENTINE [Suspect]
     Active Substance: AMOXICILLIN\CLAVULANATE POTASSIUM
     Indication: PRODUCT USED FOR UNKNOWN INDICATION
     Dosage: 1 DOSAGE FORM, 3 TIMES A DAY,AUGMENTINE 875/125 1/8 HOURS FOR TEN DAYS
     Route: 048
     Dates: start: 20210201
  14. TOCILIZUMAB. [Suspect]
     Active Substance: TOCILIZUMAB
     Indication: COVID-19 PNEUMONIA
     Dosage: UNK
     Route: 065
     Dates: start: 202011, end: 202011

REACTIONS (2)
  - Hepatitis acute [Fatal]
  - Haemophagocytic lymphohistiocytosis [Fatal]

NARRATIVE: CASE EVENT DATE: 20210204
